FAERS Safety Report 4493149-9 (Version None)
Quarter: 2004Q4

REPORT INFORMATION
  Report Type: 
  Country: None (occurrence: None)
  Receive Date: 20041104
  Receipt Date: 20040907
  Transmission Date: 20050328
  Serious: Yes (Other)
  Sender: FDA-Public Use
  Company Number: US-ROCHE-379993

PATIENT
  Age: 55 Year
  Sex: Female
  Weight: 52.6 kg

DRUGS (4)
  1. PEGASYS [Suspect]
     Indication: HEPATITIS C
     Route: 058
     Dates: start: 20040820, end: 20040825
  2. COPEGUS [Suspect]
     Indication: HEPATITIS C
     Route: 048
     Dates: start: 20040821, end: 20040825
  3. PREMPRO [Concomitant]
     Indication: MENOPAUSE
     Route: 065
  4. SUPPLEMENTS [Concomitant]
     Dosage: GLUCOSAMINE, CALCIUM AND MILK THISTLE

REACTIONS (2)
  - FACIAL PALSY [None]
  - VIRAL INFECTION [None]
